FAERS Safety Report 8104416-1 (Version None)
Quarter: 2012Q1

REPORT INFORMATION
  Report Type: 
  Country: None (occurrence: None)
  Receive Date: 20120130
  Receipt Date: 20120125
  Transmission Date: 20120608
  Serious: Yes (Other)
  Sender: FDA-Public Use
  Company Number: GB-JNJFOC-20070506621

PATIENT
  Sex: Female

DRUGS (1)
  1. TRAMADOL HYDROCHLORIDE/ACETAMINOPHEN [Suspect]
     Indication: PAIN
     Route: 048
     Dates: start: 20070508, end: 20070510

REACTIONS (4)
  - LOSS OF CONSCIOUSNESS [None]
  - TREMOR [None]
  - ORTHOSTATIC HYPOTENSION [None]
  - HYPERHIDROSIS [None]
